FAERS Safety Report 8321363-0 (Version None)
Quarter: 2012Q2

REPORT INFORMATION
  Report Type: 
  Country: None (occurrence: None)
  Receive Date: 20120430
  Receipt Date: 20120424
  Transmission Date: 20120825
  Serious: Yes (Hospitalization)
  Sender: FDA-Public Use
  Company Number: PHHO2012CA006525

PATIENT
  Sex: Female
  Weight: 51.7 kg

DRUGS (6)
  1. METHOTREXATE [Suspect]
     Indication: RHEUMATOID ARTHRITIS
     Dosage: 25 ML, QW (Q WEEKLY)
  2. LETROZOLE [Suspect]
     Indication: BREAST CANCER
     Dosage: 2.5 MG, QD
     Route: 048
     Dates: start: 20070524
  3. METOPROLOL TARTRATE [Concomitant]
     Dosage: 50 MG, BID
     Dates: start: 20070501
  4. AVAPRO [Concomitant]
     Dosage: 150 MG, BID
     Dates: start: 20070501
  5. NORVASC [Concomitant]
     Indication: HYPERTENSION
     Dosage: 5 MG, BID
     Dates: start: 20070501
  6. METOPROLOL TARTRATE [Concomitant]
     Dates: start: 20111219

REACTIONS (4)
  - SEPSIS [None]
  - CLOSTRIDIAL INFECTION [None]
  - ATRIAL FIBRILLATION [None]
  - PNEUMONIA ASPIRATION [None]
